FAERS Safety Report 12484915 (Version 2)
Quarter: 2016Q3

REPORT INFORMATION
  Report Type: Spontaneous
  Country: US (occurrence: US)
  Receive Date: 20160621
  Receipt Date: 20160826
  Transmission Date: 20161109
  Serious: No
  Sender: FDA-Public Use
  Company Number: US-GLAXOSMITHKLINE-US2016GSK082310

PATIENT
  Age: 36 Year
  Sex: Female

DRUGS (3)
  1. TANZEUM [Suspect]
     Active Substance: ALBIGLUTIDE
     Indication: BLOOD GLUCOSE ABNORMAL
  2. TANZEUM [Suspect]
     Active Substance: ALBIGLUTIDE
     Indication: INSULIN RESISTANCE
     Dosage: 30 MG, WE
     Route: 042
     Dates: start: 20160607
  3. TANZEUM [Suspect]
     Active Substance: ALBIGLUTIDE
     Indication: WEIGHT ABNORMAL

REACTIONS (5)
  - Device use error [Unknown]
  - Accidental exposure to product [Unknown]
  - Device leakage [Unknown]
  - Off label use [Unknown]
  - Product use issue [Unknown]

NARRATIVE: CASE EVENT DATE: 20160607
